FAERS Safety Report 14594628 (Version 9)
Quarter: 2018Q3

REPORT INFORMATION
  Report Type: Report from Study
  Country: DE (occurrence: DE)
  Receive Date: 20180302
  Receipt Date: 20180927
  Transmission Date: 20181010
  Serious: Yes (Hospitalization, Other)
  Sender: FDA-Public Use
  Company Number: DE-BRISTOL-MYERS SQUIBB COMPANY-BMS-2018-018422

PATIENT
  Age: 68 Year
  Sex: Male

DRUGS (3)
  1. NIVOLUMAB [Suspect]
     Active Substance: NIVOLUMAB
     Indication: PRODUCT USED FOR UNKNOWN INDICATION
     Dosage: 480 MG, Q4WK
     Route: 042
     Dates: start: 20180201
  2. NIVOLUMAB [Suspect]
     Active Substance: NIVOLUMAB
     Indication: METASTATIC MALIGNANT MELANOMA
     Dosage: 86.2 MG, Q3WK
     Route: 042
     Dates: start: 20180201, end: 20180409
  3. IPILIMUMAB [Suspect]
     Active Substance: IPILIMUMAB
     Indication: METASTATIC MALIGNANT MELANOMA
     Dosage: 258.6 ABSENT, Q3WK
     Route: 065
     Dates: start: 20180201, end: 20180409

REACTIONS (8)
  - Liver function test increased [Unknown]
  - Malignant neoplasm progression [Unknown]
  - Metastases to liver [Recovering/Resolving]
  - Atrial fibrillation [Recovered/Resolved]
  - Arthralgia [Unknown]
  - Basal cell carcinoma [Recovered/Resolved]
  - Solar dermatitis [Unknown]
  - Pneumonitis [Recovering/Resolving]

NARRATIVE: CASE EVENT DATE: 20180216
